FAERS Safety Report 17038488 (Version 2)
Quarter: 2020Q3

REPORT INFORMATION
  Report Type: Spontaneous
  Country: ES (occurrence: ES)
  Receive Date: 20191115
  Receipt Date: 20191120
  Transmission Date: 20201105
  Serious: Yes (Hospitalization)
  Sender: FDA-Public Use
  Company Number: ES-PFIZER INC-2019490958

PATIENT
  Age: 83 Year
  Sex: Female

DRUGS (7)
  1. BETAHISTINE [Suspect]
     Active Substance: BETAHISTINE
     Dosage: 8 MG, DAILY
     Route: 065
  2. COLECALCIFEROL [Suspect]
     Active Substance: CHOLECALCIFEROL
     Dosage: 1000 IU, DAILY
     Route: 065
  3. AMLODIPINE BESILATE [Suspect]
     Active Substance: AMLODIPINE BESYLATE
     Dosage: 5 MG, DAILY
     Route: 065
  4. CALCIUM CARBONATE. [Suspect]
     Active Substance: CALCIUM CARBONATE
     Dosage: 500 MG, DAILY
     Route: 065
  5. LOSARTAN. [Suspect]
     Active Substance: LOSARTAN
     Dosage: 50 MG, DAILY
     Route: 065
  6. IBANDRONIC ACID. [Suspect]
     Active Substance: IBANDRONIC ACID
     Dosage: 150 MG, MONTHLY (EVERY MONTH)
     Route: 065
  7. OMEPRAZOLE. [Suspect]
     Active Substance: OMEPRAZOLE
     Dosage: 20 MG, DAILY
     Route: 065

REACTIONS (2)
  - Pain in extremity [Unknown]
  - Plasma cell myeloma [Unknown]
